FAERS Safety Report 14671604 (Version 1)
Quarter: 2018Q1

REPORT INFORMATION
  Report Type: Spontaneous
  Country: US (occurrence: US)
  Receive Date: 20180323
  Receipt Date: 20180323
  Transmission Date: 20180509
  Serious: No
  Sender: FDA-Public Use
  Company Number: US-JNJFOC-20180307845

PATIENT
  Age: 8 Decade
  Sex: Female
  Weight: 47.63 kg

DRUGS (4)
  1. SYNTHROID [Concomitant]
     Active Substance: LEVOTHYROXINE SODIUM
     Indication: HYPOTHYROIDISM
     Route: 065
  2. MENS ROGAINE EXTRA STRENGTH [Suspect]
     Active Substance: MINOXIDIL
     Indication: ALOPECIA
     Route: 061
  3. PRAVASTATIN. [Concomitant]
     Active Substance: PRAVASTATIN
     Indication: BLOOD CHOLESTEROL INCREASED
     Route: 065
  4. MENS ROGAINE EXTRA STRENGTH [Suspect]
     Active Substance: MINOXIDIL
     Route: 061

REACTIONS (4)
  - Hair colour changes [Recovered/Resolved]
  - Wrong technique in product usage process [Unknown]
  - Off label use [Unknown]
  - Product use issue [Unknown]
